FAERS Safety Report 20875103 (Version 3)
Quarter: 2022Q2

REPORT INFORMATION
  Report Type: Spontaneous
  Country: US (occurrence: US)
  Receive Date: 20220526
  Receipt Date: 20220624
  Transmission Date: 20220721
  Serious: No
  Sender: FDA-Public Use
  Company Number: US-JNJFOC-20220533041

PATIENT
  Age: 41 Year
  Sex: Female
  Weight: 61.290 kg

DRUGS (1)
  1. TREMFYA [Suspect]
     Active Substance: GUSELKUMAB
     Indication: Psoriasis
     Route: 065

REACTIONS (6)
  - Psoriasis [Unknown]
  - Therapy cessation [Unknown]
  - Drug delivery system malfunction [Unknown]
  - Accidental exposure to product [Unknown]
  - Product dose omission issue [Unknown]
  - Injection site erythema [Unknown]

NARRATIVE: CASE EVENT DATE: 20210101
